FAERS Safety Report 14071836 (Version 1)
Quarter: 2017Q4

REPORT INFORMATION
  Report Type: Spontaneous
  Country: US (occurrence: US)
  Receive Date: 20171010
  Receipt Date: 20171010
  Transmission Date: 20180321
  Serious: No
  Sender: FDA-Public Use
  Company Number: None

PATIENT
  Sex: Male
  Weight: 72 kg

DRUGS (3)
  1. IBUPROFEN. [Concomitant]
     Active Substance: IBUPROFEN
  2. LORATADINE. [Concomitant]
     Active Substance: LORATADINE
  3. DEXTROAMPHET SACCHARAT, AMPHET ASPARTATE, DEXTROAMPHET SULFATE AND AMPHET SULFAT [Suspect]
     Active Substance: AMPHETAMINE ASPARTATE\AMPHETAMINE SULFATE\DEXTROAMPHETAMINE SACCHARATE\DEXTROAMPHETAMINE SULFATE
     Indication: ATTENTION DEFICIT/HYPERACTIVITY DISORDER
     Dosage: ?          QUANTITY:1 TABLET(S);?
     Route: 048
     Dates: start: 20171006, end: 20171010

REACTIONS (10)
  - Dry mouth [None]
  - Therapeutic product ineffective [None]
  - Headache [None]
  - Nervousness [None]
  - Anxiety [None]
  - Abdominal distension [None]
  - Nausea [None]
  - Insomnia [None]
  - Drug effect decreased [None]
  - Condition aggravated [None]

NARRATIVE: CASE EVENT DATE: 20171006
